FAERS Safety Report 8413573-9 (Version None)
Quarter: 2012Q2

REPORT INFORMATION
  Report Type: 
  Country: None (occurrence: None)
  Receive Date: 20120605
  Receipt Date: 20120524
  Transmission Date: 20120825
  Serious: Yes (Hospitalization, Other)
  Sender: FDA-Public Use
  Company Number: US-ELI_LILLY_AND_COMPANY-US201204008142

PATIENT
  Sex: Female

DRUGS (16)
  1. FORTEO [Suspect]
     Dosage: 20 UG, 2/W
  2. HUMIRA [Concomitant]
  3. THIAMINE [Concomitant]
  4. FOLIC ACID [Concomitant]
  5. VITAMIN D [Concomitant]
  6. FORTEO [Suspect]
     Dosage: 20 UG, 2/W
  7. OXYCONTIN [Concomitant]
  8. GLUCOPHAGE [Concomitant]
  9. AMITRIPTYLINE HCL [Concomitant]
  10. KLONOPIN [Concomitant]
  11. CORTISONE ACETATE [Concomitant]
  12. METHOTREXATE [Concomitant]
  13. HYDROCODONE [Concomitant]
  14. WARFARIN SODIUM [Concomitant]
  15. FORTEO [Suspect]
     Indication: OSTEOPOROSIS
     Dosage: 20 UG, QD
     Dates: start: 20111201
  16. LASIX [Concomitant]

REACTIONS (11)
  - MUSCULOSKELETAL DISCOMFORT [None]
  - THROMBOSIS [None]
  - SPINAL FRACTURE [None]
  - ARTHRITIS [None]
  - HYPOTENSION [None]
  - ARTHRALGIA [None]
  - BACK PAIN [None]
  - HEART RATE INCREASED [None]
  - INAPPROPRIATE SCHEDULE OF DRUG ADMINISTRATION [None]
  - LOSS OF CONSCIOUSNESS [None]
  - STRESS [None]
